FAERS Safety Report 17556336 (Version 1)
Quarter: 2020Q1

REPORT INFORMATION
  Report Type: Spontaneous
  Country: US (occurrence: US)
  Receive Date: 20200310
  Receipt Date: 20200310
  Transmission Date: 20200409
  Serious: No
  Sender: FDA-Public Use
  Company Number: None

PATIENT

DRUGS (2)
  1. BUDESONIDE. [Suspect]
     Active Substance: BUDESONIDE
     Dosage: ?          OTHER DOSE:0.5 MG/2ML;?
     Route: 055
  2. IPATROPIUM BROMIDE [Suspect]
     Active Substance: IPRATROPIUM BROMIDE
     Dosage: ?          OTHER DOSE:0.5 MG/VIAL;?
     Route: 055

REACTIONS (1)
  - Product packaging confusion [None]
